FAERS Safety Report 10244335 (Version 1)
Quarter: 2014Q2

REPORT INFORMATION
  Report Type: Report from Study
  Country: US (occurrence: US)
  Receive Date: 20140618
  Receipt Date: 20140618
  Transmission Date: 20141212
  Serious: Yes (Hospitalization)
  Sender: FDA-Public Use
  Company Number: US-ABBVIE-14P-163-1245933-00

PATIENT
  Age: 33 Year
  Sex: Female

DRUGS (7)
  1. HUMIRA [Suspect]
     Indication: CROHN^S DISEASE
     Dates: start: 201401, end: 201401
  2. HUMIRA [Suspect]
     Dates: start: 201401, end: 201401
  3. HUMIRA [Suspect]
     Dates: start: 201402, end: 201403
  4. HUMIRA [Suspect]
     Dates: start: 201403
  5. AMBIEN [Concomitant]
     Indication: INSOMNIA
     Dosage: AS NEEDED
  6. LOTS OF VITAMINS [Concomitant]
     Indication: PRODUCT USED FOR UNKNOWN INDICATION
  7. NORCO [Concomitant]
     Indication: PAIN
     Dosage: 5/325 MG 1/2 TAB AS NEEDED

REACTIONS (6)
  - Abdominal distension [Recovered/Resolved]
  - Abdominal pain [Recovering/Resolving]
  - Abdominal pain [Recovered/Resolved]
  - Drug ineffective [Recovered/Resolved]
  - Crohn^s disease [Not Recovered/Not Resolved]
  - Intestinal stenosis [Not Recovered/Not Resolved]
